FAERS Safety Report 9899349 (Version 3)
Quarter: 2014Q2

REPORT INFORMATION
  Report Type: Spontaneous
  Country: US (occurrence: US)
  Receive Date: 20140214
  Receipt Date: 20140502
  Transmission Date: 20141212
  Serious: Yes (Other)
  Sender: FDA-Public Use
  Company Number: US-PFIZER INC-2014042163

PATIENT
  Sex: Male

DRUGS (3)
  1. CELEBREX [Suspect]
     Dosage: 200 MG, UNK
  2. NEURONTIN [Suspect]
     Dosage: 600 MG, UNK
  3. PROTONIX [Suspect]
     Dosage: 40 MG, UNK

REACTIONS (2)
  - Ill-defined disorder [Unknown]
  - Ulcer [Unknown]
